FAERS Safety Report 23953623 (Version 1)
Quarter: 2024Q2

REPORT INFORMATION
  Report Type: Spontaneous
  Country: GR (occurrence: GR)
  Receive Date: 20240608
  Receipt Date: 20240608
  Transmission Date: 20240716
  Serious: Yes (Death, Hospitalization, Other)
  Sender: FDA-Public Use
  Company Number: GR-IPCA LABORATORIES LIMITED-IPC-2024-GR-001320

PATIENT

DRUGS (1)
  1. FUROSEMIDE [Suspect]
     Active Substance: FUROSEMIDE
     Indication: Pulmonary congestion
     Dosage: UNK
     Route: 065

REACTIONS (3)
  - Ventricular tachycardia [Fatal]
  - Hypokalaemia [Fatal]
  - Respiratory failure [Fatal]
